FAERS Safety Report 10538804 (Version 1)
Quarter: 2014Q4

REPORT INFORMATION
  Report Type: Spontaneous
  Country: IT (occurrence: IT)
  Receive Date: 20141023
  Receipt Date: 20141023
  Transmission Date: 20150529
  Serious: Yes (Hospitalization)
  Sender: FDA-Public Use
  Company Number: IT-TEVA-515725ISR

PATIENT
  Age: 54 Year
  Sex: Male

DRUGS (1)
  1. FLUOROURACILE TEVA [Suspect]
     Active Substance: FLUOROURACIL
     Indication: GASTRIC CANCER

REACTIONS (6)
  - Aphthous stomatitis [Unknown]
  - Diarrhoea [Unknown]
  - Mucosal ulceration [Unknown]
  - Oral candidiasis [Unknown]
  - Enterocolitis [Unknown]
  - Tongue discolouration [Unknown]

NARRATIVE: CASE EVENT DATE: 20140731
